FAERS Safety Report 23276618 (Version 1)
Quarter: 2023Q4

REPORT INFORMATION
  Report Type: Spontaneous
  Country: US (occurrence: None)
  Receive Date: 20231205
  Receipt Date: 20231205
  Transmission Date: 20240109
  Serious: Yes (Hospitalization)
  Sender: FDA-Public Use
  Company Number: None

PATIENT
  Age: 49 Year
  Sex: Female

DRUGS (10)
  1. RINVOQ [Suspect]
     Active Substance: UPADACITINIB
     Indication: Rheumatoid arthritis
     Dosage: FREQUENCY : DAILY;?
     Route: 048
     Dates: start: 20230914
  2. NORCO [Suspect]
     Active Substance: ACETAMINOPHEN\HYDROCODONE BITARTRATE
  3. EXECDRIN MIGRAINE [Concomitant]
  4. PRASTERONE [Concomitant]
     Active Substance: PRASTERONE
  5. MAGNESIUM [Concomitant]
     Active Substance: MAGNESIUM
  6. MULTIVITAMIN MEN [Concomitant]
  7. VITAMIN B-COMPLEX [Concomitant]
     Active Substance: DEXPANTHENOL\NIACINAMIDE\PYRIDOXINE HYDROCHLORIDE\RIBOFLAVIN 5^-PHOSPHATE SODIUM\THIAMINE HYDROCHLOR
  8. VITAMIN C [Concomitant]
     Active Substance: ASCORBIC ACID
  9. PROGESTERONE [Concomitant]
     Active Substance: PROGESTERONE
  10. TESTOSTERONE CYP MDV [Concomitant]

REACTIONS (3)
  - Gastrointestinal haemorrhage [None]
  - Therapy cessation [None]
  - Discomfort [None]
